FAERS Safety Report 8366697-9 (Version None)
Quarter: 2012Q2

REPORT INFORMATION
  Report Type: 
  Country: None (occurrence: None)
  Receive Date: 20120517
  Receipt Date: 20120514
  Transmission Date: 20120825
  Serious: Yes (Life-Threatening, Other)
  Sender: FDA-Public Use
  Company Number: GB-PFIZER INC-2012116392

PATIENT
  Age: 52 Year
  Sex: Female
  Weight: 88.7 kg

DRUGS (20)
  1. ENOXAPARIN [Concomitant]
     Dosage: UNK
  2. FLUCONAZOLE [Suspect]
     Indication: SYSTEMIC CANDIDA
     Dosage: 400 MG, UNK
     Route: 042
     Dates: start: 20120425, end: 20120428
  3. AMOXICILLIN AND CLAVULANATE POTASSIUM [Concomitant]
     Dosage: UNK
  4. VENLAFAXINE [Concomitant]
     Dosage: UNK
  5. TETRAHYDROCANNABINOL [Concomitant]
     Dosage: UNK
  6. PREGABALIN [Concomitant]
     Dosage: UNK
  7. HUMAN ACTRAPID [Concomitant]
     Dosage: UNK
  8. PIPERACILLIN AND TAZOBACTAM [Concomitant]
     Dosage: UNK
  9. ROSUVASTATIN [Concomitant]
     Dosage: UNK
  10. SENNA [Concomitant]
     Dosage: UNK
  11. FENTANYL [Concomitant]
     Dosage: UNK
  12. AMITRIPTYLINE [Concomitant]
     Dosage: UNK
  13. OXYCODONE [Concomitant]
     Dosage: UNK
  14. NOVORAPID [Concomitant]
     Dosage: UNK
  15. MOVIPREP [Concomitant]
     Dosage: UNK
  16. TEICOPLANIN [Concomitant]
     Dosage: UNK
  17. LANTUS [Concomitant]
     Dosage: UNK
  18. DOMPERIDONE [Concomitant]
     Dosage: UNK
  19. CALCIUM POLYSTYRENE SULFONATE [Concomitant]
     Dosage: UNK
  20. CLOPIDOGREL [Concomitant]
     Dosage: UNK

REACTIONS (1)
  - HYPERKALAEMIA [None]
